FAERS Safety Report 11348389 (Version 1)
Quarter: 2015Q3

REPORT INFORMATION
  Report Type: Spontaneous
  Country: US (occurrence: US)
  Receive Date: 20150806
  Receipt Date: 20150806
  Transmission Date: 20151125
  Serious: No
  Sender: FDA-Public Use
  Company Number: GXBR2015US001325

PATIENT
  Sex: Female

DRUGS (2)
  1. CHOLESTYRAMINE FOR ORAL SUSPENSION USP [Suspect]
     Active Substance: CHOLESTYRAMINE
     Indication: LYME DISEASE
     Dosage: 8 G, QD
     Route: 048
  2. ANTIBIOTICS [Concomitant]
     Active Substance: UNSPECIFIED INGREDIENT
     Dosage: UNK DF, QD

REACTIONS (2)
  - Migraine [Recovered/Resolved]
  - Off label use [Recovered/Resolved]
